FAERS Safety Report 5349910-1 (Version None)
Quarter: 2007Q2

REPORT INFORMATION
  Report Type: 
  Country: None (occurrence: None)
  Receive Date: 20070607
  Receipt Date: 20070530
  Transmission Date: 20071010
  Serious: Yes (Hospitalization)
  Sender: FDA-Public Use
  Company Number: IL-PFIZER INC-2007044446

PATIENT
  Age: 72 Year
  Sex: Female

DRUGS (4)
  1. DETRUSITOL SR [Suspect]
  2. VABEN [Concomitant]
  3. XANAX [Concomitant]
  4. LOPRESSOR [Concomitant]

REACTIONS (1)
  - JAUNDICE [None]
